FAERS Safety Report 5001989-2 (Version None)
Quarter: 2006Q2

REPORT INFORMATION
  Report Type: 
  Country: None (occurrence: None)
  Receive Date: 20060515
  Receipt Date: 20051020
  Transmission Date: 20061013
  Serious: Yes (Hospitalization)
  Sender: FDA-Public Use
  Company Number: US-MERCK-0510USA08463

PATIENT
  Age: 41 Year
  Sex: Male
  Weight: 82 kg

DRUGS (9)
  1. VIOXX [Suspect]
     Indication: INTERVERTEBRAL DISC PROTRUSION
     Route: 048
     Dates: start: 19990101, end: 20031101
  2. VIOXX [Suspect]
     Indication: NECK PAIN
     Route: 048
     Dates: start: 19990101, end: 20031101
  3. PRINIVIL [Concomitant]
     Indication: HYPERTENSION
     Route: 048
     Dates: start: 19750101
  4. ZETIA [Concomitant]
     Indication: BLOOD CHOLESTEROL
     Route: 048
     Dates: start: 19990101
  5. PREVACID [Concomitant]
     Indication: STOMACH DISCOMFORT
     Route: 065
  6. PROZAC [Concomitant]
     Indication: DEPRESSION
     Route: 065
     Dates: start: 20010101, end: 20050101
  7. DARVOCET-N 100 [Concomitant]
     Indication: PAIN
     Route: 065
     Dates: start: 19980101, end: 20000101
  8. VICODIN [Concomitant]
     Indication: PAIN
     Route: 065
     Dates: start: 20010101
  9. PAXIL [Concomitant]
     Indication: DEPRESSION
     Route: 065
     Dates: start: 19970101, end: 20010101

REACTIONS (4)
  - HERNIA [None]
  - INFECTION [None]
  - MYOCARDIAL INFARCTION [None]
  - VIRAL INFECTION [None]
